FAERS Safety Report 10916372 (Version 1)
Quarter: 2015Q1

REPORT INFORMATION
  Report Type: Spontaneous
  Country: US (occurrence: None)
  Receive Date: 20150312
  Receipt Date: 20150312
  Transmission Date: 20150721
  Serious: No
  Sender: FDA-Public Use
  Company Number: None

PATIENT
  Age: 32 Year
  Sex: Female
  Weight: 93.9 kg

DRUGS (3)
  1. CLOTRIMAZOLE. [Concomitant]
     Active Substance: CLOTRIMAZOLE
  2. BETAMETHSONE DIPROPIONATE CREAM [Concomitant]
  3. DEPO-PROVERA [Suspect]
     Active Substance: MEDROXYPROGESTERONE ACETATE
     Indication: CONTRACEPTION
     Dosage: SHOT, EVERY THREE MONTHS, GIVEN IN HIP

REACTIONS (1)
  - Skin infection [None]

NARRATIVE: CASE EVENT DATE: 20150303
